FAERS Safety Report 6287975-3 (Version None)
Quarter: 2009Q3

REPORT INFORMATION
  Report Type: 
  Country: None (occurrence: None)
  Receive Date: 20090729
  Receipt Date: 20090720
  Transmission Date: 20100115
  Serious: Yes (Other)
  Sender: FDA-Public Use
  Company Number: DE-AMGEN-US357001

PATIENT
  Age: 13 Year
  Sex: Male

DRUGS (1)
  1. ENBREL [Suspect]
     Indication: RHEUMATOID ARTHRITIS
     Route: 058
     Dates: start: 20070101

REACTIONS (6)
  - ABNORMAL DREAMS [None]
  - AGGRESSION [None]
  - HALLUCINATION, VISUAL [None]
  - MENTAL DISORDER [None]
  - PERSONALITY DISORDER [None]
  - PHYSICAL ASSAULT [None]
